FAERS Safety Report 5007815-X (Version None)
Quarter: 2006Q2

REPORT INFORMATION
  Report Type: 
  Country: None (occurrence: None)
  Receive Date: 20060403
  Receipt Date: 20051220
  Transmission Date: 20061013
  Serious: Yes (Life-Threatening)
  Sender: FDA-Public Use
  Company Number: 2006EN000006

PATIENT
  Age: 12 Year
  Sex: Male
  Weight: 41 kg

DRUGS (4)
  1. ONCASPAR [Suspect]
     Indication: LEUKAEMIA
     Dosage: 3375 IU;IM
     Route: 030
     Dates: start: 20050919, end: 20050919
  2. ONCASPAR [Suspect]
     Indication: LEUKAEMIA
     Dosage: 3375 IU;IM
     Route: 030
     Dates: start: 20050921, end: 20050921
  3. ONCASPAR [Suspect]
     Indication: LEUKAEMIA
     Dosage: 3375 IU;IM
     Route: 030
     Dates: start: 20051121, end: 20051121
  4. ONCASPAR [Suspect]
     Indication: LEUKAEMIA
     Dosage: 3375 IU;IM
     Route: 030
     Dates: start: 20051220, end: 20051220

REACTIONS (7)
  - ANAPHYLACTIC REACTION [None]
  - NAUSEA [None]
  - OEDEMA MOUTH [None]
  - RASH ERYTHEMATOUS [None]
  - RASH GENERALISED [None]
  - THROAT TIGHTNESS [None]
  - VOMITING [None]
